FAERS Safety Report 4567328-6 (Version None)
Quarter: 2005Q1

REPORT INFORMATION
  Report Type: 
  Country: None (occurrence: None)
  Receive Date: 20050127
  Receipt Date: 20050115
  Transmission Date: 20050727
  Serious: Yes (Other)
  Sender: FDA-Public Use
  Company Number: 2005015076

PATIENT
  Age: 17 Year
  Sex: Female
  Weight: 81.6475 kg

DRUGS (2)
  1. DEPO-PROVERA [Suspect]
     Indication: DYSMENORRHOEA
     Dosage: (1ST INJECTION), INTRAMUSCULAR
     Route: 030
     Dates: start: 20041130, end: 20041130
  2. MIDOL [Concomitant]

REACTIONS (14)
  - ARRHYTHMIA [None]
  - BLOOD CHLORIDE INCREASED [None]
  - CONVULSION [None]
  - DRUG INEFFECTIVE [None]
  - DYSPNOEA [None]
  - ERYTHEMA [None]
  - HOT FLUSH [None]
  - LYMPHOCYTE COUNT INCREASED [None]
  - MONOCYTE COUNT DECREASED [None]
  - PALLOR [None]
  - PERIPHERAL COLDNESS [None]
  - RASH [None]
  - SYNCOPE [None]
  - TACHYCARDIA [None]
